FAERS Safety Report 6006801-0 (Version None)
Quarter: 2008Q4

REPORT INFORMATION
  Report Type: 
  Country: None (occurrence: None)
  Receive Date: 20081217
  Receipt Date: 20071130
  Transmission Date: 20090506
  Serious: No
  Sender: FDA-Public Use
  Company Number: US-ASTRAZENECA-2004UW19612

PATIENT
  Age: 54 Year
  Sex: Female
  Weight: 65.9 kg

DRUGS (2)
  1. CRESTOR [Suspect]
     Indication: HYPERCHOLESTEROLAEMIA
     Route: 048
  2. CARAFATE [Concomitant]

REACTIONS (2)
  - ARTHRALGIA [None]
  - SWELLING [None]
